FAERS Safety Report 20503990 (Version 1)
Quarter: 2022Q1

REPORT INFORMATION
  Report Type: Spontaneous
  Country: US (occurrence: US)
  Receive Date: 20220222
  Receipt Date: 20220222
  Transmission Date: 20220423
  Serious: No
  Sender: FDA-Public Use
  Company Number: US-PFIZER INC-2019468053

PATIENT
  Age: 80 Year
  Sex: Female

DRUGS (3)
  1. LYRICA [Suspect]
     Active Substance: PREGABALIN
     Dosage: 1 EVERY (Q) EARLY PM (STRENGTH: 50 MG)
  2. LYRICA [Suspect]
     Active Substance: PREGABALIN
     Dosage: TAKE 2 CAPS BY MOUTH NIGHTLY (2 CAPSULES = 300 MG) STRENGTH: 150 MG
     Route: 048
  3. LYRICA [Suspect]
     Active Substance: PREGABALIN
     Dosage: 300MG X 2 DAILY

REACTIONS (3)
  - Confusional state [Unknown]
  - Hypoacusis [Unknown]
  - Product prescribing error [Unknown]
